FAERS Safety Report 13960974 (Version 2)
Quarter: 2018Q2

REPORT INFORMATION
  Report Type: Report from Study
  Country: AU (occurrence: AU)
  Receive Date: 20170912
  Receipt Date: 20180409
  Transmission Date: 20180711
  Serious: Yes (Hospitalization, Other)
  Sender: FDA-Public Use
  Company Number: AU-TOLMAR, INC.-2017AU011864

PATIENT
  Sex: Male

DRUGS (2)
  1. ELIGARD [Suspect]
     Active Substance: LEUPROLIDE ACETATE
     Dosage: 45 MG, EVERY SIX MONTHS
     Route: 065
     Dates: start: 20170925
  2. ELIGARD [Suspect]
     Active Substance: LEUPROLIDE ACETATE
     Indication: PROSTATE CANCER
     Dosage: 45 MG, EVERY SIX MONTHS
     Route: 065
     Dates: start: 20170320

REACTIONS (6)
  - Asthenia [Not Recovered/Not Resolved]
  - Skin haemorrhage [Unknown]
  - Urinary incontinence [Unknown]
  - Skin abrasion [Unknown]
  - Anal incontinence [Unknown]
  - Knee operation [Not Recovered/Not Resolved]

NARRATIVE: CASE EVENT DATE: 2017
